FAERS Safety Report 8376955-X (Version None)
Quarter: 2012Q2

REPORT INFORMATION
  Report Type: 
  Country: None (occurrence: None)
  Receive Date: 20120522
  Receipt Date: 20120515
  Transmission Date: 20120825
  Serious: Yes (Life-Threatening, Hospitalization)
  Sender: FDA-Public Use
  Company Number: FR-ELI_LILLY_AND_COMPANY-FR201205005172

PATIENT
  Age: 58 Year
  Sex: Male
  Weight: 70 kg

DRUGS (3)
  1. REOPRO [Concomitant]
     Indication: STENT PLACEMENT
  2. ASPIRIN [Concomitant]
     Indication: STENT PLACEMENT
  3. EFFIENT [Suspect]
     Indication: STENT PLACEMENT
     Dosage: 10 MG, QD
     Route: 048
     Dates: start: 20120501

REACTIONS (6)
  - ACIDOSIS [None]
  - OFF LABEL USE [None]
  - PULMONARY ALVEOLAR HAEMORRHAGE [None]
  - CARDIAC TAMPONADE [None]
  - COMA [None]
  - CARDIAC ARREST [None]
